FAERS Safety Report 9215060 (Version 2)
Quarter: 2013Q2

REPORT INFORMATION
  Report Type: Spontaneous
  Country: FR (occurrence: FR)
  Receive Date: 20130405
  Receipt Date: 20130417
  Transmission Date: 20140414
  Serious: Yes (Hospitalization)
  Sender: FDA-Public Use
  Company Number: FR-ASTRAZENECA-2013SE20625

PATIENT
  Age: 30843 Day
  Sex: Male

DRUGS (9)
  1. INEXIUM [Suspect]
     Route: 048
  2. ORELOX [Suspect]
     Indication: PRODUCTIVE COUGH
     Route: 048
     Dates: start: 20130124, end: 20130125
  3. APAROXAL [Concomitant]
     Route: 048
  4. DUPHALAC [Concomitant]
     Route: 048
  5. DAFALGAN [Concomitant]
     Route: 048
  6. KARDEGIC [Concomitant]
     Route: 048
  7. CORDARONE [Concomitant]
     Route: 048
  8. ZANIDIP [Concomitant]
     Route: 048
  9. ECAZIDE [Concomitant]
     Route: 048

REACTIONS (2)
  - Pancreatitis acute [Recovered/Resolved]
  - Hepatocellular injury [Recovering/Resolving]
